FAERS Safety Report 20049423 (Version 2)
Quarter: 2021Q4

REPORT INFORMATION
  Report Type: Spontaneous
  Country: US (occurrence: US)
  Receive Date: 20211109
  Receipt Date: 20211116
  Transmission Date: 20220303
  Serious: No
  Sender: FDA-Public Use
  Company Number: US-TEVA-2021-US-1971371

PATIENT
  Age: 70 Year
  Sex: Male

DRUGS (1)
  1. AIRDUO RESPICLICK [Suspect]
     Active Substance: FLUTICASONE PROPIONATE\SALMETEROL XINAFOATE
     Indication: Asthma
     Dosage: 1 PUFF TWICE A DAY
     Route: 065
     Dates: start: 2021

REACTIONS (4)
  - Dysphonia [Not Recovered/Not Resolved]
  - Blood thyroid stimulating hormone increased [Unknown]
  - Hypotension [Unknown]
  - Laryngeal disorder [Unknown]

NARRATIVE: CASE EVENT DATE: 20210101
